FAERS Safety Report 20783471 (Version 2)
Quarter: 2022Q2

REPORT INFORMATION
  Report Type: Spontaneous
  Country: US (occurrence: US)
  Receive Date: 20220504
  Receipt Date: 20220630
  Transmission Date: 20220721
  Serious: Yes (Other)
  Sender: FDA-Public Use
  Company Number: US-PFIZER INC-202200643373

PATIENT
  Age: 50 Year
  Sex: Male

DRUGS (1)
  1. XELJANZ [Suspect]
     Active Substance: TOFACITINIB CITRATE
     Dosage: 5 MG, UNK
     Dates: start: 202204

REACTIONS (6)
  - Rheumatoid arthritis [Unknown]
  - Pain [Unknown]
  - Arthralgia [Unknown]
  - Myalgia [Unknown]
  - Memory impairment [Unknown]
  - Arthropathy [Unknown]

NARRATIVE: CASE EVENT DATE: 20220101
